FAERS Safety Report 20707137 (Version 1)
Quarter: 2022Q2

REPORT INFORMATION
  Report Type: Report from Study
  Country: NL (occurrence: NL)
  Receive Date: 20220413
  Receipt Date: 20220413
  Transmission Date: 20220721
  Serious: Yes (Hospitalization)
  Sender: FDA-Public Use
  Company Number: NL-BRISTOL-MYERS SQUIBB COMPANY-2022-015483

PATIENT
  Age: 83 Year
  Sex: Male

DRUGS (3)
  1. NIVOLUMAB [Suspect]
     Active Substance: NIVOLUMAB
     Indication: Cardiac neoplasm malignant
     Dosage: FREQUENCY: 1X,?NUMBER OF LAST DOSE GIVEN: 8
     Route: 042
     Dates: start: 20210929, end: 20220304
  2. NIVOLUMAB [Suspect]
     Active Substance: NIVOLUMAB
     Indication: Oesophageal carcinoma
  3. NIVOLUMAB\RELATLIMAB-RMBW [Suspect]
     Active Substance: NIVOLUMAB\RELATLIMAB-RMBW
     Indication: Oesophageal carcinoma

REACTIONS (1)
  - Eye disorder [Recovered/Resolved with Sequelae]

NARRATIVE: CASE EVENT DATE: 20220328
